FAERS Safety Report 25533165 (Version 2)
Quarter: 2025Q3

REPORT INFORMATION
  Report Type: Report from Study
  Country: US (occurrence: US)
  Receive Date: 20250709
  Receipt Date: 20250809
  Transmission Date: 20251020
  Serious: Yes (Hospitalization)
  Sender: ALEXION PHARMACEUTICALS
  Company Number: US-ASTRAZENECA-202507USA002823US

PATIENT
  Sex: Female

DRUGS (4)
  1. BENRALIZUMAB [Suspect]
     Active Substance: BENRALIZUMAB
     Indication: Asthma
     Dosage: 30 MILLIGRAM, Q4W
     Dates: start: 20250523
  2. BENRALIZUMAB [Suspect]
     Active Substance: BENRALIZUMAB
  3. OHTUVAYRE [Concomitant]
     Active Substance: ENSIFENTRINE
  4. Vios [Concomitant]

REACTIONS (3)
  - Respiratory syncytial virus infection [Unknown]
  - Dyspnoea [Not Recovered/Not Resolved]
  - Drug ineffective [Unknown]
